FAERS Safety Report 12879148 (Version 1)
Quarter: 2016Q4

REPORT INFORMATION
  Report Type: Report from Study
  Country: KR (occurrence: KR)
  Receive Date: 20161024
  Receipt Date: 20161024
  Transmission Date: 20170207
  Serious: Yes (Hospitalization, Other)
  Sender: FDA-Public Use
  Company Number: KR-ROCHE-1844833

PATIENT

DRUGS (7)
  1. CAPECITABINE. [Suspect]
     Active Substance: CAPECITABINE
     Indication: RECTAL CANCER
     Route: 048
  2. TEGAFUR [Concomitant]
     Active Substance: TEGAFUR
     Route: 048
  3. OXALIPLATIN. [Concomitant]
     Active Substance: OXALIPLATIN
     Route: 042
  4. IRINOTECAN [Concomitant]
     Active Substance: IRINOTECAN
     Route: 042
  5. URACIL [Concomitant]
     Active Substance: URACIL
     Route: 048
  6. 5-FLUOROURACIL [Concomitant]
     Active Substance: FLUOROURACIL
     Route: 042
  7. DOXIFLURIDINE [Concomitant]
     Active Substance: DOXIFLURIDINE
     Route: 048

REACTIONS (16)
  - Decreased appetite [Unknown]
  - Fatigue [Unknown]
  - Palmar-plantar erythrodysaesthesia syndrome [Unknown]
  - Leukopenia [Unknown]
  - Anaemia [Unknown]
  - Blister [Unknown]
  - Hyperkeratosis [Unknown]
  - Off label use [Unknown]
  - Thrombocytopenia [Unknown]
  - Haemorrhage [Unknown]
  - Nausea [Unknown]
  - Skin exfoliation [Unknown]
  - Hyperbilirubinaemia [Unknown]
  - Vomiting [Unknown]
  - Oedema [Unknown]
  - Diarrhoea [Unknown]
